FAERS Safety Report 24329104 (Version 6)
Quarter: 2025Q1

REPORT INFORMATION
  Report Type: Other
  Country: US (occurrence: US)
  Receive Date: 20240917
  Receipt Date: 20250310
  Transmission Date: 20250408
  Serious: Yes (Hospitalization)
  Sender: TRAVERE THERAPEUTICS
  Company Number: US-TRAVERE-2024TVT00861

PATIENT
  Age: 70 Year
  Sex: Male

DRUGS (4)
  1. FILSPARI [Suspect]
     Active Substance: SPARSENTAN
     Indication: IgA nephropathy
     Dosage: TAKE 1 TABLET BY MOUTH 1 TIME A DAY FOR DAYS 1-14
     Route: 048
     Dates: start: 202407
  2. FILSPARI [Suspect]
     Active Substance: SPARSENTAN
     Indication: Focal segmental glomerulosclerosis
     Dosage: TAKE 2 TABLETS BY MOUTH 1 TIME A DAY ON DAYS 15-30
     Route: 048
     Dates: start: 202408
  3. SPIRONOLACTONE [Suspect]
     Active Substance: SPIRONOLACTONE
     Indication: Product used for unknown indication
  4. JARDIANCE [Concomitant]
     Active Substance: EMPAGLIFLOZIN

REACTIONS (10)
  - Rib fracture [Unknown]
  - Fracture [Unknown]
  - Hypotension [Unknown]
  - Loss of consciousness [Unknown]
  - Fall [Unknown]
  - Acute kidney injury [Recovered/Resolved]
  - Insomnia [Unknown]
  - Pollakiuria [Unknown]
  - Weight increased [Unknown]
  - Fluid retention [None]

NARRATIVE: CASE EVENT DATE: 20240701
